FAERS Safety Report 13074296 (Version 1)
Quarter: 2016Q4

REPORT INFORMATION
  Report Type: Spontaneous
  Country: US (occurrence: US)
  Receive Date: 20161230
  Receipt Date: 20161230
  Transmission Date: 20170207
  Serious: No
  Sender: FDA-Public Use
  Company Number: US-GLENMARK PHARMACEUTICALS INC, USA.-2015GMK020947

PATIENT

DRUGS (4)
  1. CICLOPIROX. [Suspect]
     Active Substance: CICLOPIROX
     Indication: FUNGAL SKIN INFECTION
     Dosage: UNK UNK, BID
     Route: 061
  2. CICLOPIROX. [Suspect]
     Active Substance: CICLOPIROX
     Dosage: UNK, ONCE IN MORNING
     Route: 061
  3. WARFARIN [Concomitant]
     Active Substance: WARFARIN
     Indication: THROMBOSIS
     Dosage: 30 YEARS AGO
  4. OMEPRAZOLE. [Concomitant]
     Active Substance: OMEPRAZOLE
     Indication: PRODUCT USED FOR UNKNOWN INDICATION
     Dosage: UNK

REACTIONS (1)
  - Disease recurrence [Not Recovered/Not Resolved]
